FAERS Safety Report 5986204-5 (Version None)
Quarter: 2008Q4

REPORT INFORMATION
  Report Type: 
  Country: None (occurrence: None)
  Receive Date: 20081209
  Receipt Date: 20081201
  Transmission Date: 20090506
  Serious: Yes (Other)
  Sender: FDA-Public Use
  Company Number: CA-KINGPHARMUSA00001-K200801361

PATIENT
  Age: 20 Year
  Sex: Female

DRUGS (6)
  1. AVINZA [Suspect]
     Indication: ANALGESIA
     Dosage: 120 MG, BID
     Route: 048
  2. NEUMEGA [Interacting]
     Indication: REFRACTORINESS TO PLATELET TRANSFUSION
     Dosage: 50 MCG/KG, QD
     Route: 058
  3. PHENOBARBITAL TAB [Concomitant]
  4. AMITRIPTYLINE HCL [Concomitant]
  5. DAPSONE [Concomitant]
  6. NEUPOGEN [Concomitant]

REACTIONS (12)
  - BLOOD CREATININE INCREASED [None]
  - BLOOD UREA INCREASED [None]
  - DEPRESSED LEVEL OF CONSCIOUSNESS [None]
  - DRUG EFFECT INCREASED [None]
  - DRUG TOXICITY [None]
  - OEDEMA PERIPHERAL [None]
  - OXYGEN SATURATION ABNORMAL [None]
  - POTENTIATING DRUG INTERACTION [None]
  - PULMONARY OEDEMA [None]
  - RESPIRATORY DEPRESSION [None]
  - SEDATION [None]
  - SOMNOLENCE [None]
